FAERS Safety Report 17348043 (Version 1)
Quarter: 2020Q1

REPORT INFORMATION
  Report Type: Spontaneous
  Country: CZ (occurrence: CZ)
  Receive Date: 20200129
  Receipt Date: 20200129
  Transmission Date: 20200409
  Serious: No
  Sender: FDA-Public Use
  Company Number: CZ-EXELIXIS-CABO-19025746

PATIENT
  Sex: Female

DRUGS (12)
  1. CABOMETYX [Suspect]
     Active Substance: CABOZANTINIB S-MALATE
     Dosage: 40 MG
  2. NOVALGIN (METAMIZOLE SODIUM) [Concomitant]
     Active Substance: METAMIZOLE SODIUM
     Indication: CARDIOMYOPATHY
  3. CABOMETYX [Suspect]
     Active Substance: CABOZANTINIB S-MALATE
     Dosage: 20 MG
  4. LETROX [Concomitant]
     Active Substance: LEVOTHYROXINE SODIUM
     Indication: CARDIOMYOPATHY
  5. CABOMETYX [Suspect]
     Active Substance: CABOZANTINIB S-MALATE
     Indication: RENAL CANCER
     Dosage: 60 MG, QD
     Dates: start: 20190822
  6. CABOMETYX [Suspect]
     Active Substance: CABOZANTINIB S-MALATE
     Dosage: 40 MG
  7. BISOPROLOL [Concomitant]
     Active Substance: BISOPROLOL
     Indication: CARDIOMYOPATHY
  8. TRITACE [Concomitant]
     Active Substance: RAMIPRIL
     Indication: CARDIOMYOPATHY
  9. FURON [Concomitant]
     Active Substance: FUROSEMIDE
     Indication: CARDIOMYOPATHY
  10. VEROSPIRON [Concomitant]
     Active Substance: SPIRONOLACTONE
     Indication: CARDIOMYOPATHY
  11. SULFASALAZINE. [Concomitant]
     Active Substance: SULFASALAZINE
     Indication: CARDIOMYOPATHY
  12. FRAXIPARINE FORTE [Concomitant]
     Active Substance: NADROPARIN CALCIUM
     Indication: CARDIOMYOPATHY

REACTIONS (4)
  - Oedema peripheral [Recovered/Resolved]
  - Haemothorax [Recovering/Resolving]
  - Dyspnoea [Recovering/Resolving]
  - Fatigue [Recovering/Resolving]

NARRATIVE: CASE EVENT DATE: 201910
